FAERS Safety Report 9855846 (Version 1)
Quarter: 2013Q4

REPORT INFORMATION
  Report Type: Spontaneous
  Country: US (occurrence: None)
  Receive Date: 20131226
  Receipt Date: 20131226
  Transmission Date: 20140711
  Serious: No
  Sender: FDA-Public Use
  Company Number: PHEH2013US018083

PATIENT
  Age: 46 Year
  Sex: Female

DRUGS (3)
  1. GILENYA (FINGOLIMOD) CAPSULE [Suspect]
  2. LYRICA (PREGABALIN) [Concomitant]
  3. DIURETICA (NO INGREDIENTS/ SUBSTANCES) [Concomitant]

REACTIONS (5)
  - Furuncle [None]
  - Swelling [None]
  - Neuralgia [None]
  - Weight increased [None]
  - Oedema peripheral [None]
